FAERS Safety Report 10013175 (Version 4)
Quarter: 2014Q2

REPORT INFORMATION
  Report Type: Spontaneous
  Country: US (occurrence: US)
  Receive Date: 20140314
  Receipt Date: 20140606
  Transmission Date: 20141212
  Serious: Yes (Hospitalization, Other)
  Sender: FDA-Public Use
  Company Number: US-BAXTER-2014BAX012397

PATIENT
  Sex: Female

DRUGS (5)
  1. DIANEAL PD2 [Suspect]
     Indication: RENAL FAILURE CHRONIC
     Route: 033
     Dates: start: 20130201
  2. DIANEAL PD2 [Suspect]
     Route: 033
     Dates: start: 20130219
  3. DIANEAL PD2 [Suspect]
     Indication: RENAL FAILURE CHRONIC
     Route: 033
     Dates: start: 20130201
  4. DIANEAL PD2 [Suspect]
     Route: 033
     Dates: start: 20130219
  5. DIANEAL PD2 [Suspect]
     Indication: RENAL FAILURE CHRONIC
     Route: 033
     Dates: start: 20130201

REACTIONS (5)
  - Cellulitis [Recovering/Resolving]
  - Calciphylaxis [Recovering/Resolving]
  - Bacterial infection [Unknown]
  - Staphylococcal infection [Recovering/Resolving]
  - Calcinosis [Recovering/Resolving]
